FAERS Safety Report 7549128-8 (Version None)
Quarter: 2011Q2

REPORT INFORMATION
  Report Type: 
  Country: None (occurrence: None)
  Receive Date: 20110615
  Receipt Date: 20110601
  Transmission Date: 20111010
  Serious: Yes (Hospitalization)
  Sender: FDA-Public Use
  Company Number: PHHY2011US15563

PATIENT
  Sex: Female

DRUGS (10)
  1. RECLAST [Suspect]
     Indication: OSTEOPOROSIS
     Route: 042
     Dates: start: 20101228
  2. TRAMADOL HCL [Concomitant]
     Dosage: 100 MG
  3. ASPIRIN [Concomitant]
     Dosage: 81 MG
  4. SILYBUM MARIANUM [Concomitant]
  5. SYNTHROID [Concomitant]
     Dosage: 100 UG
  6. XANAX [Concomitant]
     Dosage: 0.25 MG
     Route: 048
  7. CREON [Concomitant]
     Dosage: 2400 U
  8. DEXLANSOPRAZOLE [Concomitant]
  9. PREMARIN [Concomitant]
     Dosage: 0.625 MG
  10. PERCOCET [Concomitant]

REACTIONS (8)
  - DYSPNOEA [None]
  - MYALGIA [None]
  - CHEST PAIN [None]
  - MUSCULOSKELETAL PAIN [None]
  - BONE SWELLING [None]
  - PAIN IN EXTREMITY [None]
  - ARTHRALGIA [None]
  - PAIN [None]
